FAERS Safety Report 8164213-8 (Version None)
Quarter: 2012Q1

REPORT INFORMATION
  Report Type: 
  Country: None (occurrence: None)
  Receive Date: 20120221
  Receipt Date: 20120206
  Transmission Date: 20120608
  Serious: Yes (Hospitalization)
  Sender: FDA-Public Use
  Company Number: 11-262

PATIENT
  Age: 63 Year
  Sex: Male

DRUGS (12)
  1. GENATOSAN MULTIVITAMINS [Concomitant]
  2. SUNITINIB MALATE [Suspect]
     Indication: PROSTATE CANCER
     Dosage: 25 MG, ORAL
     Route: 048
     Dates: start: 20090905, end: 20100513
  3. ENOXAPARIN SODIUM [Concomitant]
  4. ACETAMINOPHEN [Concomitant]
  5. ZOLADEX (GOSERLIN) [Concomitant]
  6. FENTANYL [Concomitant]
  7. MOVIPREP [Concomitant]
  8. LANSOPRAZOLE [Concomitant]
  9. IBUPROFEN TABLETS [Suspect]
     Indication: BACK PAIN
     Dates: start: 20090918, end: 20110514
  10. PREDNISONE TAB [Suspect]
     Indication: PROSTATE CANCER
     Dosage: 5 MG, ORAL
     Route: 048
     Dates: start: 20090504, end: 20100516
  11. CYCLIZINE [Concomitant]
  12. OXYCODONE HCL [Concomitant]

REACTIONS (1)
  - VOMITING [None]
